FAERS Safety Report 16664402 (Version 2)
Quarter: 2019Q4

REPORT INFORMATION
  Report Type: Spontaneous
  Country: CA (occurrence: CA)
  Receive Date: 20190802
  Receipt Date: 20191008
  Transmission Date: 20200122
  Serious: Yes (Disabling, Other)
  Sender: FDA-Public Use
  Company Number: CA-TEVA-2019-CA-1085238

PATIENT
  Age: 72 Year
  Sex: Female
  Weight: 53 kg

DRUGS (9)
  1. FOLIC ACID. [Concomitant]
     Active Substance: FOLIC ACID
  2. BUPROPION SR [Suspect]
     Active Substance: BUPROPION HYDROCHLORIDE
     Indication: MAJOR DEPRESSION
     Dosage: 150 MILLIGRAM DAILY;
  3. BUPROPION SR [Suspect]
     Active Substance: BUPROPION HYDROCHLORIDE
  4. CELEXA [Concomitant]
     Active Substance: CITALOPRAM HYDROBROMIDE
  5. TYLENOL ARTHRITIS PAIN [Concomitant]
     Active Substance: ACETAMINOPHEN
  6. LEVOTHYROXINE. [Concomitant]
     Active Substance: LEVOTHYROXINE
  7. OPTIFER ALPHA [Concomitant]
  8. MTX [Concomitant]
     Active Substance: METHOTREXATE SODIUM
  9. RANITIDINE. [Concomitant]
     Active Substance: RANITIDINE

REACTIONS (12)
  - Constipation [Unknown]
  - Psychomotor hyperactivity [Unknown]
  - Dizziness [Unknown]
  - Irritability [Unknown]
  - Abdominal distension [Unknown]
  - Binge eating [Unknown]
  - Abdominal pain [Unknown]
  - Diarrhoea [Unknown]
  - Disturbance in attention [Unknown]
  - Hypersomnia [Unknown]
  - Tremor [Unknown]
  - Product substitution issue [Unknown]
